FAERS Safety Report 9578714 (Version 1)
Quarter: 2013Q4

REPORT INFORMATION
  Report Type: Spontaneous
  Country: US (occurrence: US)
  Receive Date: 20131001
  Receipt Date: 20131001
  Transmission Date: 20140711
  Serious: No
  Sender: FDA-Public Use
  Company Number: US-AMGEN-USASP2013014695

PATIENT
  Age: 57 Year
  Sex: Female
  Weight: 97.51 kg

DRUGS (12)
  1. ENBREL [Suspect]
     Indication: PSORIASIS
     Dosage: 50 MG, QWK
     Route: 058
  2. ENBREL [Suspect]
     Indication: PSORIATIC ARTHROPATHY
  3. LISINOPRIL [Concomitant]
     Dosage: 10 MG, UNK
  4. TRACLEER                           /01587701/ [Concomitant]
     Dosage: 125 MG, UNK
  5. HYDROCHLOROTHIAZIDE [Concomitant]
     Dosage: 25 MG, UNK
  6. OMEPRAZOLE [Concomitant]
     Dosage: 20 MG, UNK
  7. KLOR-CON M20 [Concomitant]
     Dosage: 20 MEQ, UNK
  8. VITAMIN D2 [Concomitant]
     Dosage: 400 UNIT, UNK
  9. NIASPAN [Concomitant]
     Dosage: 500 MG, UNK
  10. CARDIZEM LA [Concomitant]
     Dosage: 180 MG, UNK
  11. IMDUR [Concomitant]
     Dosage: 30 MG, UNK
  12. REVATIO [Concomitant]
     Dosage: 20 MG, UNK

REACTIONS (1)
  - Gastroenteritis viral [Recovered/Resolved]
